FAERS Safety Report 15232492 (Version 1)
Quarter: 2018Q3

REPORT INFORMATION
  Report Type: Spontaneous
  Country: DE (occurrence: DE)
  Receive Date: 20180802
  Receipt Date: 20180802
  Transmission Date: 20181010
  Serious: Yes (Other)
  Sender: FDA-Public Use
  Company Number: DE-BAYER-2018-144818

PATIENT
  Age: 63 Year
  Sex: Female

DRUGS (3)
  1. NORFLOXACIN [Suspect]
     Active Substance: NORFLOXACIN
     Indication: CYSTITIS
     Dosage: 800 MG, UNK
     Route: 048
  2. CIPROBAY 500 MG [Suspect]
     Active Substance: CIPROFLOXACIN
     Indication: EAR INFECTION
     Dosage: 500 MG, BID
     Route: 048
  3. OFLOXACIN. [Suspect]
     Active Substance: OFLOXACIN
     Indication: CYSTITIS
     Dosage: 200 MG, UNK
     Route: 048

REACTIONS (5)
  - Tenosynovitis [Not Recovered/Not Resolved]
  - Gait disturbance [Not Recovered/Not Resolved]
  - Initial insomnia [Not Recovered/Not Resolved]
  - Pain [Not Recovered/Not Resolved]
  - Tendonitis [Not Recovered/Not Resolved]

NARRATIVE: CASE EVENT DATE: 20171008
